FAERS Safety Report 9458202 (Version 1)
Quarter: 2013Q3

REPORT INFORMATION
  Report Type: Spontaneous
  Country: US (occurrence: None)
  Receive Date: 20130812
  Receipt Date: 20130812
  Transmission Date: 20140515
  Serious: Yes (Hospitalization)
  Sender: FDA-Public Use
  Company Number: AG-2012-1120

PATIENT
  Age: 77 Year
  Sex: Male
  Weight: 177 kg

DRUGS (9)
  1. CHLORAMBUCIL (CHLORAMBUCIL) (UNKNOWN) [Suspect]
     Indication: CHRONIC LYMPHOCYTIC LEUKAEMIA
     Dates: start: 20120705
  2. INVESTIGATIONAL STUDY DRUG (INVESTIGATIONAL DRUG UNSPECIFIED) [Concomitant]
  3. ASPIRIN (ACETYLSALICYLIC ACID) [Concomitant]
  4. FOLIC ACID (FOLIC ACID) [Concomitant]
  5. NYSTATIN (NYSTATIN) [Concomitant]
  6. CLOTRIMAZOLE (CLOTRIMAZOLE) [Concomitant]
  7. MICONAZOLE (MICONZOLE) [Concomitant]
  8. CALCIUM (CALCIUM) [Concomitant]
  9. VITAMIN D (VITAMIN D AND ANALOGUES) [Concomitant]

REACTIONS (7)
  - Pneumocystis jirovecii pneumonia [None]
  - Fatigue [None]
  - Dyspnoea [None]
  - Malaise [None]
  - Febrile neutropenia [None]
  - Pneumocystis jirovecii pneumonia [None]
  - Platelet count decreased [None]
